FAERS Safety Report 21144336 (Version 1)
Quarter: 2022Q3

REPORT INFORMATION
  Report Type: Spontaneous
  Country: NL (occurrence: NL)
  Receive Date: 20220728
  Receipt Date: 20220728
  Transmission Date: 20221026
  Serious: Yes (Other)
  Sender: FDA-Public Use
  Company Number: NL-UCBSA-2022016972

PATIENT
  Age: 63 Year
  Sex: Female

DRUGS (3)
  1. TERIPARATIDE [Interacting]
     Active Substance: TERIPARATIDE
     Indication: Product used for unknown indication
     Dosage: UNK UNK, UNKNOWN
     Route: 065
  2. EVENITY [Interacting]
     Active Substance: ROMOSOZUMAB-AQQG
     Indication: Osteoporosis
     Dosage: 210 MILLIGRAM, MONTHLY (QM)
     Route: 058
     Dates: start: 20211202
  3. EVENITY [Interacting]
     Active Substance: ROMOSOZUMAB-AQQG
     Dosage: 210 MG, MONTHLY (1/M)
     Route: 058
     Dates: start: 20211202

REACTIONS (3)
  - Acne [Not Recovered/Not Resolved]
  - Drug interaction [Not Recovered/Not Resolved]
  - Injection site pain [Not Recovered/Not Resolved]

NARRATIVE: CASE EVENT DATE: 20211202
